FAERS Safety Report 8067897-8 (Version None)
Quarter: 2012Q1

REPORT INFORMATION
  Report Type: 
  Country: None (occurrence: None)
  Receive Date: 20120124
  Receipt Date: 20110908
  Transmission Date: 20120608
  Serious: No
  Sender: FDA-Public Use
  Company Number: US-AMGEN-USASP2011041301

PATIENT
  Age: 80 Year
  Sex: Female
  Weight: 78.458 kg

DRUGS (4)
  1. PROLIA [Suspect]
     Indication: OSTEOPOROSIS POSTMENOPAUSAL
     Dosage: 60 MG, Q6MO
     Route: 058
     Dates: start: 20110801, end: 20110801
  2. MULTIVITAMIN                       /00097801/ [Concomitant]
  3. ALTACE [Concomitant]
     Dosage: 10 MG, UNK
     Dates: start: 20031006
  4. HYDROCHLOROTHIAZIDE [Concomitant]
     Dosage: 25 MG, UNK
     Dates: start: 20030211

REACTIONS (2)
  - DYSPHONIA [None]
  - LYMPHADENOPATHY [None]
